FAERS Safety Report 9363601 (Version 4)
Quarter: 2013Q3

REPORT INFORMATION
  Report Type: Spontaneous
  Country: JP (occurrence: JP)
  Receive Date: 20130624
  Receipt Date: 20130823
  Transmission Date: 20140515
  Serious: Yes (Other)
  Sender: FDA-Public Use
  Company Number: PHHY2013JP064110

PATIENT
  Age: 61 Year
  Sex: Male

DRUGS (9)
  1. CO-DIOVAN [Suspect]
     Indication: HYPERTENSION
     Dosage: 1 DF, DAILY
     Route: 048
     Dates: start: 20120409, end: 20130501
  2. PLETAL [Concomitant]
     Indication: CEREBROVASCULAR ACCIDENT
     Dosage: 450 MG, UNK
     Route: 048
     Dates: start: 20070401
  3. CALBLOCK [Concomitant]
     Indication: HYPERTENSION
     Dosage: 16 MG, UNK
     Route: 048
     Dates: start: 20111003
  4. LIPITOR [Concomitant]
     Indication: DYSLIPIDAEMIA
     Dosage: 5 MG, UNK
     Route: 048
     Dates: start: 20111003
  5. CODEINE PHOSPHATE HEMIHYDRATE [Concomitant]
     Indication: ANTITUSSIVE THERAPY
     Dosage: 18 G, UNK
     Route: 048
     Dates: start: 20130424, end: 20130617
  6. SYMBICORT [Concomitant]
     Indication: ASTHMA
     Dosage: 4 DF, UNK
     Dates: start: 20120117, end: 20130501
  7. ONON [Concomitant]
     Indication: ASTHMA
     Dosage: 225 MG, UNK
     Route: 048
  8. ONON [Concomitant]
     Dosage: 900 MG, UNK
     Route: 048
     Dates: end: 20130501
  9. DIOVAN [Concomitant]
     Indication: HYPERTENSION
     Dosage: 80 MG, UNK
     Route: 048
     Dates: start: 20111003, end: 20120409

REACTIONS (2)
  - Interstitial lung disease [Recovered/Resolved]
  - Cough [Unknown]
